FAERS Safety Report 11179535 (Version 1)
Quarter: 2015Q2

REPORT INFORMATION
  Report Type: Spontaneous
  Country: US (occurrence: US)
  Receive Date: 20150611
  Receipt Date: 20150611
  Transmission Date: 20150821
  Serious: Yes (Hospitalization, Other)
  Sender: FDA-Public Use
  Company Number: US-PFIZER INC-2015188298

PATIENT
  Age: 77 Year
  Sex: Female
  Weight: 104.3 kg

DRUGS (31)
  1. LASIX [Concomitant]
     Active Substance: FUROSEMIDE
     Dosage: 20 MG, DAILY
     Route: 048
     Dates: start: 20140826
  2. BENADRYL [Concomitant]
     Active Substance: DIPHENHYDRAMINE HYDROCHLORIDE
     Dosage: 50 MG/ 2 CAPS, UNK
     Dates: start: 20150423, end: 20150423
  3. FAMOTIDINE. [Concomitant]
     Active Substance: FAMOTIDINE
     Dosage: 20 MG 50 ML, UNK
     Dates: start: 20150423, end: 20150423
  4. ZESTRIL [Concomitant]
     Active Substance: LISINOPRIL
     Dosage: 2.5 MG, DAILY
  5. ZOFRAN [Concomitant]
     Active Substance: ONDANSETRON HYDROCHLORIDE
     Dosage: UNK
  6. HEPARIN FLUSH [Concomitant]
     Dosage: 10 ML, UNK
     Route: 042
     Dates: start: 20150430, end: 20150430
  7. PLAVIX [Concomitant]
     Active Substance: CLOPIDOGREL BISULFATE
     Dosage: UNK
     Route: 048
  8. TORISEL [Suspect]
     Active Substance: TEMSIROLIMUS
     Indication: RENAL CELL CARCINOMA
     Dosage: 20 MG, CYCLIC WEEKLY X 4 FOR 6 CYCLES, (25MG/ 2.5 ML, 252.5ML/HR)
     Route: 042
     Dates: start: 20150416, end: 20150416
  9. TORISEL [Suspect]
     Active Substance: TEMSIROLIMUS
     Dosage: 20 MG, CYCLIC WEEKLY X 4 FOR 6 CYCLES,WEEKLY X 4 FOR 6 CYCLES, (25MG/ 2.5 ML, 252.5ML/HR)
     Route: 042
     Dates: start: 20150430, end: 20150430
  10. NAPROXEN. [Concomitant]
     Active Substance: NAPROXEN
     Dosage: UNK
  11. LOPAMIDOL [Concomitant]
     Dosage: 30 MG, UNK
     Route: 042
     Dates: start: 20150416, end: 20150416
  12. NITROSTAT [Concomitant]
     Active Substance: NITROGLYCERIN
     Dosage: 0.4 MG, UNK
     Route: 060
  13. COUMADIN [Concomitant]
     Active Substance: WARFARIN SODIUM
     Dosage: 4 MG, DAILY
  14. BENADRYL [Concomitant]
     Active Substance: DIPHENHYDRAMINE HYDROCHLORIDE
     Dosage: 50 MG/ 2 CAPS, UNK
     Dates: start: 20150416, end: 20150416
  15. HEPARIN FLUSH [Concomitant]
     Dosage: 10 ML, UNK
     Route: 042
     Dates: start: 20150423, end: 20150423
  16. LOPRESSOR [Concomitant]
     Active Substance: METOPROLOL TARTRATE
     Dosage: 25 MG, 2X/DAY
     Route: 048
  17. LIPITOR [Concomitant]
     Active Substance: ATORVASTATIN CALCIUM
     Dosage: 20 MG, DAILY
     Route: 048
  18. BONIVA [Concomitant]
     Active Substance: IBANDRONATE SODIUM
     Dosage: 150 MG, MONTHLY
  19. IMDUR [Concomitant]
     Active Substance: ISOSORBIDE MONONITRATE
     Dosage: 30 MG, DAILY
     Route: 048
     Dates: start: 20131120
  20. PREDNISONE. [Concomitant]
     Active Substance: PREDNISONE
     Dosage: 20 MG, ALTERNATE DAY
     Route: 048
     Dates: start: 20150106
  21. GLUCOSAMINE CHONDROITIN MSM [Concomitant]
     Dosage: 1 DF, DAILY
     Route: 048
     Dates: start: 20130909
  22. ALTEPLASE [Concomitant]
     Active Substance: ALTEPLASE
     Dosage: 2 MG, SINGLE (PUSH ONCE)
     Route: 042
     Dates: start: 20150416, end: 20150416
  23. HEPARIN FLUSH [Concomitant]
     Dosage: 10 ML, UNK
     Route: 042
     Dates: start: 20150416, end: 20150417
  24. BENADRYL [Concomitant]
     Active Substance: DIPHENHYDRAMINE HYDROCHLORIDE
     Dosage: 50 MG/ 2 CAPS, UNK
     Dates: start: 20150430, end: 20150430
  25. TORISEL [Suspect]
     Active Substance: TEMSIROLIMUS
     Dosage: 20 MG, CYCLIC WEEKLY X 4 FOR 6 CYCLES, (25MG/ 2.5 ML, 252.5ML/HR)
     Route: 042
     Dates: start: 20150423, end: 20150423
  26. VITAMIN C [Concomitant]
     Active Substance: ASCORBIC ACID
     Dosage: 1000 MG, DAILY
     Route: 048
     Dates: start: 20111207
  27. APAP [Concomitant]
     Active Substance: ACETAMINOPHEN
     Dosage: 650 MG/ 2 TABS, UNK
     Dates: start: 20150416, end: 20150416
  28. FAMOTIDINE. [Concomitant]
     Active Substance: FAMOTIDINE
     Dosage: 20 MG/ 50 ML, UNK
     Dates: start: 20150416, end: 20150416
  29. FAMOTIDINE. [Concomitant]
     Active Substance: FAMOTIDINE
     Dosage: 20 MG/ 50 ML UNK
     Dates: start: 20150430, end: 20150430
  30. SYNTHROID [Concomitant]
     Active Substance: LEVOTHYROXINE SODIUM
     Dosage: 50 ?G, DAILY
     Route: 048
     Dates: start: 20111024
  31. TENORMIN [Concomitant]
     Active Substance: ATENOLOL
     Dosage: 50 MG, DAILY
     Route: 048
     Dates: start: 20131120

REACTIONS (11)
  - Acute myocardial infarction [Recovered/Resolved with Sequelae]
  - Platelet count decreased [Unknown]
  - Angina unstable [Recovered/Resolved with Sequelae]
  - Blood potassium decreased [Unknown]
  - Mean cell haemoglobin increased [Unknown]
  - Blood creatinine increased [Unknown]
  - Blood glucose increased [Unknown]
  - Lymphocyte count decreased [Unknown]
  - Blood triglycerides increased [Unknown]
  - Atrial fibrillation [Recovered/Resolved with Sequelae]
  - Red blood cell count decreased [Unknown]

NARRATIVE: CASE EVENT DATE: 20150504
